FAERS Safety Report 9804803 (Version 3)
Quarter: 2014Q2

REPORT INFORMATION
  Report Type: Spontaneous
  Country: US (occurrence: US)
  Receive Date: 20140108
  Receipt Date: 20140411
  Transmission Date: 20141212
  Serious: Yes (Hospitalization, Other)
  Sender: FDA-Public Use
  Company Number: US-BAXTER-2014BAX000300

PATIENT
  Age: 20 Year
  Sex: Female

DRUGS (1)
  1. DIANEAL LOW CALCIUM [Suspect]
     Indication: RENAL FAILURE CHRONIC
     Route: 033

REACTIONS (6)
  - Myocardial oedema [Not Recovered/Not Resolved]
  - Pulmonary oedema [Not Recovered/Not Resolved]
  - Pneumonia [Unknown]
  - Peritoneal dialysis complication [Unknown]
  - Hypotension [Unknown]
  - Fluid overload [Not Recovered/Not Resolved]
